FAERS Safety Report 9198907 (Version 1)
Quarter: 2013Q1

REPORT INFORMATION
  Report Type: Spontaneous
  Country: PH (occurrence: PH)
  Receive Date: 20130329
  Receipt Date: 20130329
  Transmission Date: 20140127
  Serious: Yes (Other)
  Sender: FDA-Public Use
  Company Number: PH-009507513-1303PHL012365

PATIENT
  Sex: Male

DRUGS (1)
  1. COZAAR [Suspect]
     Dosage: ONE TABLET, ONCE A DAY
     Route: 048
     Dates: end: 20130311

REACTIONS (2)
  - Renal transplant [Unknown]
  - Blood pressure systolic increased [Unknown]
